FAERS Safety Report 4747137-5 (Version None)
Quarter: 2005Q3

REPORT INFORMATION
  Report Type: 
  Country: None (occurrence: None)
  Receive Date: 20050815
  Receipt Date: 20050728
  Transmission Date: 20060218
  Serious: Yes (Other)
  Sender: FDA-Public Use
  Company Number: USA0507104101

PATIENT
  Age: 27 Year
  Sex: Female

DRUGS (3)
  1. CYMBALTA [Suspect]
     Indication: HEADACHE
     Dosage: 60 MG DAY
     Dates: start: 20050705
  2. NIASPAN [Concomitant]
  3. ADDERALL XR 15 [Concomitant]

REACTIONS (20)
  - AGGRESSION [None]
  - AMNESIA [None]
  - CONDITION AGGRAVATED [None]
  - CONFUSIONAL STATE [None]
  - CONVULSION [None]
  - FALL [None]
  - FATIGUE [None]
  - FEAR OF DISEASE [None]
  - FEELING ABNORMAL [None]
  - HOMICIDAL IDEATION [None]
  - INSOMNIA [None]
  - MENTAL STATUS CHANGES [None]
  - PARAESTHESIA [None]
  - READING DISORDER [None]
  - RESTLESS LEGS SYNDROME [None]
  - SEROTONIN SYNDROME [None]
  - SUICIDAL IDEATION [None]
  - TREATMENT NONCOMPLIANCE [None]
  - TREMOR [None]
  - VISUAL DISTURBANCE [None]
